FAERS Safety Report 21244140 (Version 3)
Quarter: 2022Q3

REPORT INFORMATION
  Report Type: Spontaneous
  Country: US (occurrence: US)
  Receive Date: 20220823
  Receipt Date: 20220914
  Transmission Date: 20221027
  Serious: Yes (Hospitalization)
  Sender: FDA-Public Use
  Company Number: US-BIOMARINAP-US-2022-144983

PATIENT

DRUGS (3)
  1. PALYNZIQ [Suspect]
     Active Substance: PEGVALIASE-PQPZ
     Indication: Phenylketonuria
     Dosage: 20 MILLIGRAM, QOD
     Route: 058
  2. PALYNZIQ [Suspect]
     Active Substance: PEGVALIASE-PQPZ
     Dosage: UNK
     Route: 058
     Dates: start: 20211102
  3. TRABECTEDIN [Concomitant]
     Active Substance: TRABECTEDIN
     Indication: Fibrosarcoma metastatic
     Dosage: 2.52 MILLIGRAM
     Dates: start: 20220728

REACTIONS (5)
  - Bacteraemia [Recovering/Resolving]
  - Febrile neutropenia [Recovering/Resolving]
  - Chills [Recovering/Resolving]
  - Pneumonia [Recovering/Resolving]
  - Transfusion reaction [Recovering/Resolving]

NARRATIVE: CASE EVENT DATE: 20220801
